FAERS Safety Report 9248755 (Version 1)
Quarter: 2013Q1

REPORT INFORMATION
  Report Type: Spontaneous
  Country: US (occurrence: None)
  Receive Date: 20130305
  Receipt Date: 20130305
  Transmission Date: 20140127
  Serious: Yes (Other)
  Sender: FDA-Public Use
  Company Number: 163-21880-12100369

PATIENT
  Age: 51 Year
  Sex: Male
  Weight: 80.29 kg

DRUGS (1)
  1. REVLIMID [Suspect]
     Indication: PLASMA CELL MYELOMA
     Dosage: 1 IN 1 D
     Route: 048
     Dates: start: 200905

REACTIONS (3)
  - Anaemia [None]
  - Thrombocytopenia [None]
  - Neutropenia [None]
